FAERS Safety Report 18495640 (Version 1)
Quarter: 2020Q4

REPORT INFORMATION
  Report Type: Spontaneous
  Country: CN (occurrence: CN)
  Receive Date: 20201112
  Receipt Date: 20201112
  Transmission Date: 20210114
  Serious: Yes (Hospitalization, Other)
  Sender: FDA-Public Use
  Company Number: CN-PFIZER INC-2020442958

PATIENT
  Age: 61 Year
  Sex: Male

DRUGS (1)
  1. METHYLPREDNISOLONE. [Suspect]
     Active Substance: METHYLPREDNISOLONE
     Indication: DERMATOMYOSITIS
     Dosage: MORNING DOSE 40MG, NIGHT DOSE 24 MG, DAILY
     Route: 048

REACTIONS (9)
  - Aspergillus infection [Recovered/Resolved]
  - Mucormycosis [Recovered/Resolved]
  - Pneumonia fungal [Recovered/Resolved]
  - Leptotrichia infection [Recovered/Resolved]
  - Pneumocystis jirovecii infection [Recovered/Resolved]
  - Herpes virus infection [Recovered/Resolved]
  - Cytomegalovirus infection [Recovered/Resolved]
  - Influenza [Recovered/Resolved]
  - Bacterial infection [Recovered/Resolved]
